FAERS Safety Report 5799955-2 (Version None)
Quarter: 2008Q3

REPORT INFORMATION
  Report Type: 
  Country: None (occurrence: None)
  Receive Date: 20080703
  Receipt Date: 20080630
  Transmission Date: 20090109
  Serious: Yes (Other)
  Sender: FDA-Public Use
  Company Number: DE-BAYER-200821215GPV

PATIENT
  Age: 71 Year
  Sex: Male
  Weight: 75 kg

DRUGS (1)
  1. NEXAVAR [Suspect]
     Indication: HEPATIC NEOPLASM MALIGNANT
     Dosage: TOTAL DAILY DOSE: 800 MG  UNIT DOSE: 200 MG
     Route: 048
     Dates: start: 20080210, end: 20080219

REACTIONS (6)
  - ALOPECIA [None]
  - ANGINA PECTORIS [None]
  - ARRHYTHMIA [None]
  - MALAISE [None]
  - NAUSEA [None]
  - RASH GENERALISED [None]
